FAERS Safety Report 24524258 (Version 2)
Quarter: 2024Q4

REPORT INFORMATION
  Report Type: Spontaneous
  Country: FR (occurrence: FR)
  Receive Date: 20241018
  Receipt Date: 20241206
  Transmission Date: 20250115
  Serious: Yes (Other)
  Sender: SANDOZ
  Company Number: FR-IPFR-202400041

PATIENT
  Sex: Male

DRUGS (1)
  1. METHYLPHENIDATE HYDROCHLORIDE [Suspect]
     Active Substance: METHYLPHENIDATE HYDROCHLORIDE
     Indication: Product used for unknown indication
     Dosage: UNK (COMPRIM? S?CABLE)
     Route: 065

REACTIONS (7)
  - Toxicity to various agents [Unknown]
  - Blood disorder [Unknown]
  - Neuropathy peripheral [Unknown]
  - Mental status changes [Unknown]
  - Suspected counterfeit product [Unknown]
  - Torticollis [Unknown]
  - Disturbance in attention [Unknown]
